FAERS Safety Report 6750450-3 (Version None)
Quarter: 2010Q2

REPORT INFORMATION
  Report Type: 
  Country: None (occurrence: None)
  Receive Date: 20100527
  Receipt Date: 20100521
  Transmission Date: 20101027
  Serious: Yes (Death, Life-Threatening, Other)
  Sender: FDA-Public Use
  Company Number: 2010US000535

PATIENT
  Age: 44 Year
  Sex: Female
  Weight: 45 kg

DRUGS (6)
  1. AMBISOME [Suspect]
     Indication: ZYGOMYCOSIS
     Dosage: 300, D, IV NOS, 3 MG/KG, UID/QD, IV NOS, 10 MG/KG, UID/QD, IV NOS
     Route: 042
     Dates: start: 20100112, end: 20100208
  2. AMBISOME [Suspect]
     Indication: ZYGOMYCOSIS
     Dosage: 300, D, IV NOS, 3 MG/KG, UID/QD, IV NOS, 10 MG/KG, UID/QD, IV NOS
     Route: 042
     Dates: start: 20100126
  3. TRAMADOL HCL [Suspect]
     Indication: HEADACHE
     Dosage: 50, D, ORAL
     Route: 048
     Dates: start: 20100117, end: 20100118
  4. ACETAMINOPHEN [Concomitant]
  5. ISOPOTINE   (VERAPAMIL HYDROCHLORIDE) [Concomitant]
  6. HYPERIUM (RILMENIDINE PHOSPHATE) [Concomitant]

REACTIONS (20)
  - ASPERGILLOSIS [None]
  - AXILLARY VEIN THROMBOSIS [None]
  - BLOOD SODIUM DECREASED [None]
  - CHRONIC RESPIRATORY FAILURE [None]
  - COMA [None]
  - CYTOLYTIC HEPATITIS [None]
  - DISEASE PROGRESSION [None]
  - DISEASE RECURRENCE [None]
  - HAEMOGLOBIN DECREASED [None]
  - HYPERCAPNIA [None]
  - HYPERCAPNIC ENCEPHALOPATHY [None]
  - HYPERHIDROSIS [None]
  - HYPERTENSION [None]
  - JUGULAR VEIN THROMBOSIS [None]
  - OEDEMA PERIPHERAL [None]
  - RENAL FAILURE ACUTE [None]
  - STREPTOCOCCAL INFECTION [None]
  - SUBCLAVIAN VEIN THROMBOSIS [None]
  - VENOUS THROMBOSIS LIMB [None]
  - ZYGOMYCOSIS [None]
